FAERS Safety Report 14923440 (Version 1)
Quarter: 2018Q2

REPORT INFORMATION
  Report Type: Report from Study
  Country: FR (occurrence: FR)
  Receive Date: 20180522
  Receipt Date: 20180522
  Transmission Date: 20180711
  Serious: Yes (Hospitalization, Other)
  Sender: FDA-Public Use
  Company Number: FR-ACCORD-067231

PATIENT
  Sex: Male
  Weight: 81 kg

DRUGS (10)
  1. TOCILIZUMAB. [Suspect]
     Active Substance: TOCILIZUMAB
     Indication: RHEUMATOID ARTHRITIS
     Route: 058
     Dates: start: 20150610
  2. ACTONEL [Concomitant]
     Active Substance: RISEDRONATE SODIUM
  3. SPECIAFOLDINE [Concomitant]
     Active Substance: FOLIC ACID
  4. DOLIPRANE [Concomitant]
     Active Substance: ACETAMINOPHEN
  5. CORTANCYL [Concomitant]
     Active Substance: PREDNISONE
     Indication: RHEUMATOID ARTHRITIS
  6. CLARITYNE [Concomitant]
     Active Substance: LORATADINE
  7. ROACTEMRA [Suspect]
     Active Substance: TOCILIZUMAB
     Indication: RHEUMATOID ARTHRITIS
     Route: 041
     Dates: start: 20121207, end: 20150507
  8. METHOTREXATE. [Suspect]
     Active Substance: METHOTREXATE
     Indication: RHEUMATOID ARTHRITIS
  9. PEFLACINE [Suspect]
     Active Substance: PEFLOXACIN MESYLATE
     Indication: SUBCUTANEOUS ABSCESS
     Dosage: 2 TABLETS DAILY FOR 8 DAYS
  10. UVEDOSE [Concomitant]
     Active Substance: CHOLECALCIFEROL

REACTIONS (14)
  - Cataract [Unknown]
  - Ear infection [Recovered/Resolved]
  - Tooth abscess [Recovered/Resolved]
  - Conjunctivitis [Recovered/Resolved]
  - Subcutaneous abscess [Unknown]
  - Tendon disorder [Unknown]
  - Atrial flutter [Recovered/Resolved]
  - Cardiac failure [Recovered/Resolved]
  - Tonsillitis [Recovered/Resolved]
  - Lip ulceration [Recovered/Resolved]
  - Rib fracture [Unknown]
  - Neutrophil count decreased [Recovered/Resolved]
  - Mean cell volume increased [Recovered/Resolved]
  - Cough [Unknown]

NARRATIVE: CASE EVENT DATE: 2013
